FAERS Safety Report 18450819 (Version 2)
Quarter: 2020Q4

REPORT INFORMATION
  Report Type: Spontaneous
  Country: JP (occurrence: JP)
  Receive Date: 20201030
  Receipt Date: 20201119
  Transmission Date: 20210114
  Serious: Yes (Other)
  Sender: FDA-Public Use
  Company Number: JP-ROCHE-2704157

PATIENT
  Age: 66 Year
  Sex: Female
  Weight: 59 kg

DRUGS (8)
  1. POLARAMINE [Concomitant]
     Active Substance: DEXCHLORPHENIRAMINE MALEATE
     Dosage: DOSAGE IS UNCERTAIN.
     Route: 065
     Dates: start: 20200325, end: 20200513
  2. FAMOTIDINE. [Concomitant]
     Active Substance: FAMOTIDINE
     Dosage: DOSAGE IS UNCERTAIN.
     Route: 065
     Dates: start: 20200325, end: 20200513
  3. DEXART [Concomitant]
     Active Substance: DEXAMETHASONE SODIUM PHOSPHATE
     Dosage: DOSAGE IS UNCERTAIN.
     Route: 065
     Dates: start: 20200325, end: 20200513
  4. CARBOPLATIN. [Concomitant]
     Active Substance: CARBOPLATIN
     Indication: LUNG ADENOCARCINOMA
     Dosage: DOSAGE IS UNCERTAIN.
     Route: 041
  5. AVASTIN [Suspect]
     Active Substance: BEVACIZUMAB
     Indication: LUNG ADENOCARCINOMA
     Route: 041
     Dates: start: 20200325
  6. PACLITAXEL. [Suspect]
     Active Substance: PACLITAXEL
     Indication: LUNG ADENOCARCINOMA
     Route: 041
     Dates: start: 20200325, end: 20200513
  7. ALOXI [Concomitant]
     Active Substance: PALONOSETRON HYDROCHLORIDE
     Dosage: DOSAGE IS UNCERTAIN.
     Route: 065
     Dates: start: 20200325, end: 20200513
  8. TECENTRIQ [Suspect]
     Active Substance: ATEZOLIZUMAB
     Indication: LUNG ADENOCARCINOMA
     Dosage: DOSAGE IS UNCERTAIN.
     Route: 041

REACTIONS (1)
  - Dysaesthesia [Recovering/Resolving]

NARRATIVE: CASE EVENT DATE: 20200407
